FAERS Safety Report 9617054 (Version 1)
Quarter: 2013Q4

REPORT INFORMATION
  Report Type: Spontaneous
  Country: US (occurrence: US)
  Receive Date: 20131011
  Receipt Date: 20131011
  Transmission Date: 20140711
  Serious: Yes (Hospitalization)
  Sender: FDA-Public Use
  Company Number: US-BIOGENIDEC-2013BI096850

PATIENT
  Age: 65 Year
  Sex: Female

DRUGS (3)
  1. AVONEX [Suspect]
     Indication: MULTIPLE SCLEROSIS
     Route: 030
     Dates: start: 20071130, end: 201304
  2. AVONEX [Suspect]
     Indication: MULTIPLE SCLEROSIS
     Route: 030
     Dates: start: 201304
  3. IBUPROFEN [Concomitant]
     Indication: PREMEDICATION

REACTIONS (4)
  - Wrist fracture [Not Recovered/Not Resolved]
  - Fall [Recovered/Resolved]
  - Migraine [Recovered/Resolved]
  - Influenza like illness [Recovered/Resolved]
